FAERS Safety Report 21478343 (Version 1)
Quarter: 2022Q4

REPORT INFORMATION
  Report Type: Spontaneous
  Country: US (occurrence: None)
  Receive Date: 20221018
  Receipt Date: 20221018
  Transmission Date: 20230113
  Serious: Yes (Other)
  Sender: FDA-Public Use
  Company Number: None

PATIENT
  Age: 68 Year
  Sex: Male
  Weight: 98.55 kg

DRUGS (1)
  1. LUMASON [Suspect]
     Active Substance: SULFUR HEXAFLUORIDE
     Indication: Cardiac imaging procedure
     Dosage: FREQUENCY : ONCE;?
     Route: 042
     Dates: start: 20221018

REACTIONS (5)
  - Burning sensation [None]
  - Pruritus [None]
  - Sensation of foreign body [None]
  - Dyspnoea [None]
  - Hyperhidrosis [None]

NARRATIVE: CASE EVENT DATE: 20221018
